FAERS Safety Report 22836436 (Version 2)
Quarter: 2025Q4

REPORT INFORMATION
  Report Type: Spontaneous
  Country: GB (occurrence: GB)
  Receive Date: 20230818
  Receipt Date: 20251119
  Transmission Date: 20260118
  Serious: Yes (Death, Other)
  Sender: NOVARTIS
  Company Number: GB-002147023-NVSC2023GB179656

PATIENT
  Age: 64 Year
  Sex: Male

DRUGS (2)
  1. LUTATHERA [Suspect]
     Active Substance: LUTETIUM OXODOTREOTIDE LU-177
     Indication: Pancreatic neuroendocrine tumour
     Dosage: 7400 MBQ (FIRST CYCLE)
     Route: 065
  2. LUTATHERA [Suspect]
     Active Substance: LUTETIUM OXODOTREOTIDE LU-177
     Dosage: 3700 MBQ (SECOND CYCLE)
     Route: 065

REACTIONS (8)
  - Death [Fatal]
  - Pancreatic neuroendocrine tumour [Unknown]
  - Malignant neoplasm progression [Unknown]
  - Thrombocytopenia [Unknown]
  - Decreased appetite [Unknown]
  - Pain [Unknown]
  - Fatigue [Unknown]
  - Myalgia [Unknown]
